FAERS Safety Report 13629955 (Version 1)
Quarter: 2017Q2

REPORT INFORMATION
  Report Type: Spontaneous
  Country: US (occurrence: US)
  Receive Date: 20170531
  Receipt Date: 20170531
  Transmission Date: 20170830
  Serious: No
  Sender: FDA-Public Use
  Company Number: US-ASTELLAS-1262593

PATIENT
  Sex: Male

DRUGS (7)
  1. TRIAMTERENE. [Concomitant]
     Active Substance: TRIAMTERENE
  2. ONDANSETRON [Concomitant]
     Active Substance: ONDANSETRON
  3. TARCEVA [Suspect]
     Active Substance: ERLOTINIB HYDROCHLORIDE
     Indication: LUNG NEOPLASM MALIGNANT
     Route: 048
     Dates: start: 20130724, end: 20130814
  4. ATORVASTATIN [Concomitant]
     Active Substance: ATORVASTATIN
  5. WARFARIN [Concomitant]
     Active Substance: WARFARIN
  6. TARCEVA [Suspect]
     Active Substance: ERLOTINIB HYDROCHLORIDE
     Dosage: DOSE REDUCED
     Route: 048
     Dates: start: 20130814
  7. HYDROMORPHONE [Concomitant]
     Active Substance: HYDROMORPHONE

REACTIONS (3)
  - Stomatitis [Unknown]
  - Swollen tongue [Unknown]
  - Diarrhoea [Unknown]
